FAERS Safety Report 22078091 (Version 1)
Quarter: 2023Q1

REPORT INFORMATION
  Report Type: Spontaneous
  Country: CN (occurrence: CN)
  Receive Date: 20230309
  Receipt Date: 20230309
  Transmission Date: 20230418
  Serious: Yes (Hospitalization)
  Sender: FDA-Public Use
  Company Number: CN-PFIZER INC-PV202300037199

PATIENT
  Age: 64 Year
  Sex: Male

DRUGS (5)
  1. NIRMATRELVIR\RITONAVIR [Suspect]
     Active Substance: NIRMATRELVIR\RITONAVIR
     Indication: COVID-19
     Dosage: 1 DF, 1X/DAY
     Route: 048
     Dates: start: 20230107, end: 20230110
  2. CEFOPERAZONE SODIUM\SULBACTAM SODIUM [Suspect]
     Active Substance: CEFOPERAZONE SODIUM\SULBACTAM SODIUM
     Indication: COVID-19
     Dosage: 1.5 G, 1X/DAY
     Route: 041
     Dates: start: 20230108, end: 20230110
  3. IBUPROFEN [Suspect]
     Active Substance: IBUPROFEN
     Indication: COVID-19
     Dosage: 1 DF, 1X/DAY
     Route: 048
     Dates: start: 20230104, end: 20230110
  4. AMOXICILLIN [Suspect]
     Active Substance: AMOXICILLIN
     Indication: Anti-infective therapy
     Dosage: 1 DF, 2X/DAY
     Route: 048
     Dates: start: 20230104, end: 20230110
  5. ACETAMINOPHEN\AMINOPHENAZONE\CAFFEINE\CHLORPHENAMINE MALEATE [Suspect]
     Active Substance: ACETAMINOPHEN\AMINOPHENAZONE\CAFFEINE\CHLORPHENAMINE MALEATE
     Indication: COVID-19
     Dosage: 1 DF, 1X/DAY
     Route: 048
     Dates: start: 20230104, end: 20230110

REACTIONS (3)
  - Drug-induced liver injury [Recovering/Resolving]
  - Incorrect product administration duration [Unknown]
  - Incorrect dose administered [Unknown]

NARRATIVE: CASE EVENT DATE: 20230118
